FAERS Safety Report 15675160 (Version 1)
Quarter: 2018Q4

REPORT INFORMATION
  Report Type: Spontaneous
  Country: US (occurrence: US)
  Receive Date: 20181129
  Receipt Date: 20181129
  Transmission Date: 20190205
  Serious: Yes (Other)
  Sender: FDA-Public Use
  Company Number: None

PATIENT
  Age: 11 Year
  Sex: Male

DRUGS (1)
  1. MONTELUKAST [Suspect]
     Active Substance: MONTELUKAST SODIUM
     Indication: ASTHMA
     Dates: start: 20170401, end: 20171010

REACTIONS (10)
  - Agitation [None]
  - Disorientation [None]
  - Depression [None]
  - Aggression [None]
  - Memory impairment [None]
  - Suicidal ideation [None]
  - Blepharospasm [None]
  - Lagophthalmos [None]
  - Anxiety [None]
  - Disturbance in attention [None]

NARRATIVE: CASE EVENT DATE: 20170801
